FAERS Safety Report 7352618-4 (Version None)
Quarter: 2011Q1

REPORT INFORMATION
  Report Type: 
  Country: None (occurrence: None)
  Receive Date: 20110315
  Receipt Date: 20110307
  Transmission Date: 20110831
  Serious: Yes (Hospitalization, Other)
  Sender: FDA-Public Use
  Company Number: US-ELI_LILLY_AND_COMPANY-US201012005240

PATIENT
  Sex: Female
  Weight: 66.122 kg

DRUGS (8)
  1. METOPROLOL [Concomitant]
  2. DIOVAN [Concomitant]
  3. POTASSIUM [Concomitant]
  4. FORTEO [Suspect]
     Indication: OSTEOPOROSIS
     Dosage: 20 UG, DAILY (1/D)
     Route: 058
     Dates: start: 20100422
  5. NEXIUM [Concomitant]
  6. ARICEPT [Concomitant]
  7. RANEXA [Concomitant]
  8. ISOSORBIDE DINITRATE [Concomitant]

REACTIONS (8)
  - MUSCLE SPASMS [None]
  - BLOOD GLUCOSE DECREASED [None]
  - ASTHENIA [None]
  - EXPRESSIVE LANGUAGE DISORDER [None]
  - PALPITATIONS [None]
  - TRANSIENT ISCHAEMIC ATTACK [None]
  - MEMORY IMPAIRMENT [None]
  - TEARFULNESS [None]
